FAERS Safety Report 9895055 (Version 2)
Quarter: 2014Q1

REPORT INFORMATION
  Report Type: Spontaneous
  Country: US (occurrence: US)
  Receive Date: 20140213
  Receipt Date: 20140213
  Transmission Date: 20141002
  Serious: No
  Sender: FDA-Public Use
  Company Number: US-BRISTOL-MYERS SQUIBB COMPANY-17349259

PATIENT
  Age: 68 Year
  Sex: Male

DRUGS (1)
  1. ORENCIA FOR INJ 250 MG/VIAL [Suspect]
     Indication: RHEUMATOID ARTHRITIS
     Dosage: LAST INFUSION ON 31-JAN-2013,14FEB13
     Route: 042

REACTIONS (4)
  - Pain [Unknown]
  - Diabetic neuropathy [Recovering/Resolving]
  - Drug ineffective [Unknown]
  - Hypertension [Unknown]
